FAERS Safety Report 5027726-3 (Version None)
Quarter: 2006Q2

REPORT INFORMATION
  Report Type: 
  Country: None (occurrence: None)
  Receive Date: 20060614
  Receipt Date: 20060614
  Transmission Date: 20061013
  Serious: Yes (Other)
  Sender: FDA-Public Use
  Company Number: None

PATIENT
  Age: 37 Year
  Sex: Male
  Weight: 82.5547 kg

DRUGS (1)
  1. CLEAR CARE  HYDROGEN PEROXIDE 3% + OTHERS  CIBAVISION [Suspect]
     Indication: CORRECTIVE LENS USER
     Dosage: ONE SQUIRT OF THE BOTTLE  TWICE DAILY  INTRAOCULAR
     Route: 031
     Dates: start: 20060612, end: 20060612

REACTIONS (6)
  - EYE IRRITATION [None]
  - EYE PAIN [None]
  - INCORRECT ROUTE OF DRUG ADMINISTRATION [None]
  - MEDICATION ERROR [None]
  - OCULAR HYPERAEMIA [None]
  - WRONG DRUG ADMINISTERED [None]
